FAERS Safety Report 15744112 (Version 1)
Quarter: 2018Q4

REPORT INFORMATION
  Report Type: Spontaneous
  Country: US (occurrence: US)
  Receive Date: 20181220
  Receipt Date: 20181220
  Transmission Date: 20190205
  Serious: No
  Sender: FDA-Public Use
  Company Number: US-009507513-1811USA009661

PATIENT
  Age: 66 Year
  Sex: Male

DRUGS (9)
  1. ASPIRIN. [Concomitant]
     Active Substance: ASPIRIN
     Indication: CORONARY ARTERY DISEASE
     Dosage: MAXIMALLY TITRATED MEDICAL THERAPY
  2. PRASUGREL HYDROCHLORIDE [Concomitant]
     Active Substance: PRASUGREL HYDROCHLORIDE
     Indication: CORONARY ARTERY DISEASE
     Dosage: MAXIMALLY TITRATED MEDICAL THERAPY
  3. NITROGLYCERIN. [Concomitant]
     Active Substance: NITROGLYCERIN
     Indication: CORONARY ARTERY DISEASE
     Dosage: MAXIMALLY TITRATED MEDICAL THERAPY
  4. PRINIVIL [Suspect]
     Active Substance: LISINOPRIL
     Indication: CORONARY ARTERY DISEASE
     Dosage: MAXIMALLY TITRATED MEDICAL THERAPY
     Route: 048
  5. CARVEDILOL. [Concomitant]
     Active Substance: CARVEDILOL
     Indication: CORONARY ARTERY DISEASE
     Dosage: MAXIMALLY TITRATED MEDICAL THERAPY
  6. ISOSORBIDE MONONITRATE. [Concomitant]
     Active Substance: ISOSORBIDE MONONITRATE
     Indication: CORONARY ARTERY DISEASE
     Dosage: MAXIMALLY TITRATED MEDICAL THERAPY
  7. ATORVASTATIN [Concomitant]
     Active Substance: ATORVASTATIN
     Indication: CORONARY ARTERY DISEASE
     Dosage: MAXIMALLY TITRATED MEDICAL THERAPY
  8. RANOLAZINE HYDROCHLORIDE [Concomitant]
     Active Substance: RANOLAZINE HYDROCHLORIDE
     Indication: CORONARY ARTERY DISEASE
     Dosage: MAXIMALLY TITRATED MEDICAL THERAPY
  9. NITROGLYCERIN. [Concomitant]
     Active Substance: NITROGLYCERIN
     Indication: CORONARY ARTERY DISEASE
     Dosage: MAXIMALLY TITRATED MEDICAL THERAPY

REACTIONS (1)
  - Product use in unapproved indication [Unknown]
